FAERS Safety Report 22666508 (Version 7)
Quarter: 2023Q4

REPORT INFORMATION
  Report Type: Other
  Country: US (occurrence: US)
  Receive Date: 20230703
  Receipt Date: 20231128
  Transmission Date: 20240109
  Serious: Yes (Other)
  Sender: FDA-Public Use
  Company Number: US-Stemline Therapeutics, Inc.-2023ST001570

PATIENT
  Age: 74 Year
  Sex: Female

DRUGS (5)
  1. ORSERDU [Suspect]
     Active Substance: ELACESTRANT
     Indication: Product used for unknown indication
     Route: 048
     Dates: start: 20230615, end: 20230617
  2. ORSERDU [Suspect]
     Active Substance: ELACESTRANT
     Dosage: 345 MG ONCE DAILY
     Route: 048
     Dates: start: 20230630, end: 20230704
  3. ORSERDU [Suspect]
     Active Substance: ELACESTRANT
     Dosage: THE TITRATED DOSE WAS SENT TO PATIENT AND PATIENT REFUSED TO TAKE
     Route: 048
     Dates: start: 20230722, end: 20230919
  4. ORSERDU [Suspect]
     Active Substance: ELACESTRANT
     Route: 048
     Dates: start: 20231020
  5. PRILOSEC [Concomitant]
     Active Substance: OMEPRAZOLE MAGNESIUM
     Indication: Gastrooesophageal reflux disease
     Route: 065

REACTIONS (17)
  - Metastases to stomach [Not Recovered/Not Resolved]
  - Throat irritation [Not Recovered/Not Resolved]
  - Chest pain [Unknown]
  - Hospice care [Unknown]
  - Vomiting [Not Recovered/Not Resolved]
  - Nausea [Recovered/Resolved]
  - Retching [Not Recovered/Not Resolved]
  - Generalised oedema [Not Recovered/Not Resolved]
  - Oesophagitis [Not Recovered/Not Resolved]
  - Fungal infection [Not Recovered/Not Resolved]
  - Dysphagia [Not Recovered/Not Resolved]
  - Product dose omission issue [Not Recovered/Not Resolved]
  - Dyspepsia [Not Recovered/Not Resolved]
  - Fatigue [Not Recovered/Not Resolved]
  - Productive cough [Not Recovered/Not Resolved]
  - Gastrooesophageal reflux disease [Not Recovered/Not Resolved]
  - Nausea [Not Recovered/Not Resolved]

NARRATIVE: CASE EVENT DATE: 20230616
